FAERS Safety Report 19067539 (Version 1)
Quarter: 2021Q1

REPORT INFORMATION
  Report Type: Spontaneous
  Country: FR (occurrence: FR)
  Receive Date: 20210329
  Receipt Date: 20210329
  Transmission Date: 20210420
  Serious: Yes (Hospitalization)
  Sender: FDA-Public Use
  Company Number: FR-PFIZER INC-2021282517

PATIENT
  Age: 68 Year
  Sex: Male
  Weight: 87 kg

DRUGS (3)
  1. OFLOCET [OFLOXACIN] [Suspect]
     Active Substance: OFLOXACIN
     Indication: OSTEITIS
     Dosage: UNK
     Route: 048
     Dates: end: 20210217
  2. LINEZOLID. [Suspect]
     Active Substance: LINEZOLID
     Indication: OSTEITIS
     Dosage: 1200 MG, 1X/DAY
     Route: 048
     Dates: end: 20210217
  3. FRAGMINE [Suspect]
     Active Substance: DALTEPARIN SODIUM
     Indication: THROMBOSIS PROPHYLAXIS
     Dosage: UNK
     Route: 058

REACTIONS (2)
  - Anaemia [Not Recovered/Not Resolved]
  - Thrombocytopenia [Not Recovered/Not Resolved]

NARRATIVE: CASE EVENT DATE: 20210217
